FAERS Safety Report 15899014 (Version 1)
Quarter: 2019Q1

REPORT INFORMATION
  Report Type: Report from Study
  Country: BG (occurrence: BG)
  Receive Date: 20190201
  Receipt Date: 20190201
  Transmission Date: 20190417
  Serious: Yes (Other)
  Sender: FDA-Public Use
  Company Number: BG-GLAXOSMITHKLINE-BG2019GSK012484

PATIENT
  Sex: Female

DRUGS (1)
  1. BELIMUMAB [Suspect]
     Active Substance: BELIMUMAB
     Indication: SYSTEMIC LUPUS ERYTHEMATOSUS
     Dosage: UNK
     Route: 042
     Dates: start: 2018

REACTIONS (4)
  - Infection [Unknown]
  - Drug ineffective [Unknown]
  - Systemic lupus erythematosus [Unknown]
  - Malaise [Unknown]

NARRATIVE: CASE EVENT DATE: 2018
